FAERS Safety Report 8460422-9 (Version None)
Quarter: 2012Q2

REPORT INFORMATION
  Report Type: 
  Country: None (occurrence: None)
  Receive Date: 20120622
  Receipt Date: 20120613
  Transmission Date: 20120825
  Serious: Yes (Other)
  Sender: FDA-Public Use
  Company Number: US-ASTRAZENECA-2012SE39811

PATIENT
  Age: 63 Year
  Sex: Female

DRUGS (7)
  1. TARCEVA [Concomitant]
     Indication: NEOPLASM MALIGNANT
  2. PREMARIN [Concomitant]
     Route: 067
  3. VITAMIN D2 [Concomitant]
  4. CRESTOR [Suspect]
     Route: 048
  5. LEVOTHYROXINE [Concomitant]
  6. CLONAZEPAM [Concomitant]
  7. CLINDAMYCIN PHOSPHATE TOPICAL GEL [Concomitant]
     Route: 061

REACTIONS (1)
  - NON-SMALL CELL LUNG CANCER STAGE IV [None]
